FAERS Safety Report 7550494-8 (Version None)
Quarter: 2011Q2

REPORT INFORMATION
  Report Type: 
  Country: None (occurrence: None)
  Receive Date: 20110615
  Receipt Date: 20110610
  Transmission Date: 20111010
  Serious: Yes (Hospitalization)
  Sender: FDA-Public Use
  Company Number: US-GILEAD-2011-0040048

PATIENT
  Sex: Female

DRUGS (13)
  1. LETAIRIS [Suspect]
     Indication: PULMONARY HYPERTENSION
     Route: 048
     Dates: start: 20101105
  2. BUDESONIDE [Concomitant]
  3. ASPIRIN [Concomitant]
  4. REVATIO [Concomitant]
  5. ATROVENT [Concomitant]
  6. LEVOTHYROXINE SODIUM [Concomitant]
  7. SINGULAIR [Concomitant]
  8. FLUTICASONE PROPIONATE [Concomitant]
  9. GUAIFENESIN [Concomitant]
  10. LOVENOX [Concomitant]
  11. ALBUTEROL [Concomitant]
  12. SOLU-MEDROL [Concomitant]
  13. FERROUS SULFATE TAB [Concomitant]

REACTIONS (7)
  - UPPER RESPIRATORY TRACT CONGESTION [None]
  - NASAL CONGESTION [None]
  - MUSCULOSKELETAL PAIN [None]
  - ACUTE RESPIRATORY FAILURE [None]
  - OEDEMA [None]
  - SINUSITIS [None]
  - NECK PAIN [None]
